FAERS Safety Report 11758805 (Version 1)
Quarter: 2015Q4

REPORT INFORMATION
  Report Type: Spontaneous
  Country: JP (occurrence: JP)
  Receive Date: 20151120
  Receipt Date: 20151120
  Transmission Date: 20160304
  Serious: Yes (Death, Hospitalization)
  Sender: FDA-Public Use
  Company Number: JP-PFIZER INC-2015397979

PATIENT
  Age: 40 Year
  Sex: Male
  Weight: 58 kg

DRUGS (16)
  1. CAMPTO [Suspect]
     Active Substance: IRINOTECAN
     Indication: PANCREATIC CARCINOMA
     Dosage: 250 MG, 1X/DAY
     Route: 041
     Dates: start: 20140910, end: 20140910
  2. ELPLAT [Suspect]
     Active Substance: OXALIPLATIN
     Dosage: 147 MG, 1X/DAY
     Route: 041
     Dates: start: 20141105, end: 20141105
  3. CAMPTO [Suspect]
     Active Substance: IRINOTECAN
     Dosage: 250 MG, 1X/DAY
     Route: 041
     Dates: start: 20141119, end: 20141119
  4. ELPLAT [Suspect]
     Active Substance: OXALIPLATIN
     Dosage: 147 MG, 1X/DAY
     Route: 041
     Dates: start: 20141119, end: 20141119
  5. LEVOFOLINATE CALCIUM [Concomitant]
     Active Substance: LEUCOVORIN CALCIUM
     Dosage: 196 MG/M2, UNK
     Dates: start: 20140910, end: 20141217
  6. ELPLAT [Suspect]
     Active Substance: OXALIPLATIN
     Dosage: 147 MG, 1X/DAY
     Route: 041
     Dates: start: 20140924, end: 20140924
  7. ELPLAT [Suspect]
     Active Substance: OXALIPLATIN
     Dosage: 147 MG, 1X/DAY
     Route: 041
     Dates: start: 20141008, end: 20141008
  8. ELPLAT [Suspect]
     Active Substance: OXALIPLATIN
     Dosage: 147 MG, 1X/DAY
     Route: 041
     Dates: start: 20141022, end: 20141022
  9. CAMPTO [Suspect]
     Active Substance: IRINOTECAN
     Dosage: 250 MG, 1X/DAY
     Route: 041
     Dates: start: 20140924, end: 20140924
  10. CAMPTO [Suspect]
     Active Substance: IRINOTECAN
     Dosage: 250 MG, 1X/DAY
     Route: 041
     Dates: start: 20141217, end: 20141217
  11. ELPLAT [Suspect]
     Active Substance: OXALIPLATIN
     Indication: PANCREATIC CARCINOMA
     Dosage: 147 MG, 1X/DAY
     Route: 041
     Dates: start: 20140910, end: 20140910
  12. CAMPTO [Suspect]
     Active Substance: IRINOTECAN
     Dosage: 250 MG, 1X/DAY
     Route: 041
     Dates: start: 20141022, end: 20141022
  13. 5-FU /00098801/ [Concomitant]
     Active Substance: FLUOROURACIL
     Dosage: 2403 MG/M2, (D1-2)
     Dates: start: 20140910, end: 20141217
  14. CAMPTO [Suspect]
     Active Substance: IRINOTECAN
     Dosage: 250 MG, 1X/DAY
     Route: 041
     Dates: start: 20141105, end: 20141105
  15. ELPLAT [Suspect]
     Active Substance: OXALIPLATIN
     Dosage: 147 MG, 1X/DAY
     Route: 041
     Dates: start: 20141217, end: 20141217
  16. CAMPTO [Suspect]
     Active Substance: IRINOTECAN
     Dosage: 250 MG, 1X/DAY
     Route: 041
     Dates: start: 20141008, end: 20141008

REACTIONS (9)
  - Disease progression [Fatal]
  - Decreased appetite [Not Recovered/Not Resolved]
  - Aspartate aminotransferase increased [Recovered/Resolved]
  - Fatigue [Recovered/Resolved]
  - Peripheral sensory neuropathy [Recovered/Resolved]
  - Nausea [Recovered/Resolved]
  - Pancreatic carcinoma [Fatal]
  - Bile duct stenosis [Recovering/Resolving]
  - Alanine aminotransferase increased [Recovered/Resolved]

NARRATIVE: CASE EVENT DATE: 20150514
